FAERS Safety Report 10087598 (Version 1)
Quarter: 2014Q2

REPORT INFORMATION
  Report Type: Spontaneous
  Country: US (occurrence: US)
  Receive Date: 20140418
  Receipt Date: 20140418
  Transmission Date: 20141212
  Serious: Yes (Other)
  Sender: FDA-Public Use
  Company Number: US-NAPPMUNDI-USA-2013-0108713

PATIENT
  Age: 23 Year
  Sex: Male

DRUGS (3)
  1. OXYCODONE HYDROCHLORIDE (SIMILAR TO NDA 22-272) [Suspect]
     Indication: PRODUCT USED FOR UNKNOWN INDICATION
  2. BENZODIAZEPINE DERIVATIVES [Suspect]
     Indication: DRUG ABUSE
  3. METHAMPHETAMINE [Suspect]
     Indication: DRUG ABUSE

REACTIONS (6)
  - Substance abuse [Unknown]
  - Visual acuity reduced [Unknown]
  - Sleep attacks [Unknown]
  - Abnormal behaviour [Unknown]
  - Fatigue [Unknown]
  - Euphoric mood [Unknown]
